FAERS Safety Report 10157146 (Version 1)
Quarter: 2014Q2

REPORT INFORMATION
  Report Type: Spontaneous
  Country: US (occurrence: US)
  Receive Date: 20140507
  Receipt Date: 20140507
  Transmission Date: 20141212
  Serious: No
  Sender: FDA-Public Use
  Company Number: US-PFIZER INC-2014124002

PATIENT
  Sex: Female

DRUGS (5)
  1. FLAGYL [Suspect]
  2. CHLORHEXIDINE [Suspect]
  3. BUFFERED ASPIRIN [Suspect]
  4. PERCOCET [Suspect]
  5. PENICILLIN NOS [Suspect]

REACTIONS (1)
  - Drug hypersensitivity [Unknown]
